FAERS Safety Report 5431420-4 (Version None)
Quarter: 2007Q3

REPORT INFORMATION
  Report Type: 
  Country: None (occurrence: None)
  Receive Date: 20070830
  Receipt Date: 20070606
  Transmission Date: 20080115
  Serious: No
  Sender: FDA-Public Use
  Company Number: A0654421A

PATIENT
  Age: 67 Year
  Sex: Male

DRUGS (3)
  1. WELLBUTRIN XL [Suspect]
     Indication: DEPRESSION
     Dosage: 150MG PER DAY
     Route: 048
     Dates: start: 20070425
  2. FLOMAX [Concomitant]
  3. UNKNOWN MEDICATION [Concomitant]
     Indication: GLAUCOMA

REACTIONS (2)
  - LETHARGY [None]
  - MENTAL IMPAIRMENT [None]
